FAERS Safety Report 6925830-3 (Version None)
Quarter: 2010Q3

REPORT INFORMATION
  Report Type: 
  Country: None (occurrence: None)
  Receive Date: 20100813
  Receipt Date: 20100813
  Transmission Date: 20110219
  Serious: Yes (Hospitalization)
  Sender: FDA-Public Use
  Company Number: None

PATIENT
  Sex: Female
  Weight: 61 kg

DRUGS (1)
  1. TARCEVA [Suspect]
     Dosage: 6150 M
     Dates: end: 20100811

REACTIONS (5)
  - ABDOMINAL PAIN [None]
  - COUGH [None]
  - DYSPNOEA [None]
  - DYSURIA [None]
  - LETHARGY [None]
